FAERS Safety Report 23158483 (Version 1)
Quarter: 2023Q4

REPORT INFORMATION
  Report Type: Other
  Country: None (occurrence: CA)
  Receive Date: 20231108
  Receipt Date: 20231108
  Transmission Date: 20240109
  Serious: Yes (Hospitalization)
  Sender: FDA-Public Use
  Company Number: CA-Appco Pharma LLC-2147962

PATIENT

DRUGS (7)
  1. HYDROXYCHLOROQUINE SULFATE [Suspect]
     Active Substance: HYDROXYCHLOROQUINE SULFATE
     Indication: Arthralgia
     Route: 064
  2. SULFASALAZINE [Suspect]
     Active Substance: SULFASALAZINE
     Route: 064
  3. LEFLUNOMIDE [Suspect]
     Active Substance: LEFLUNOMIDE
     Route: 064
  4. METHOTREXATE [Suspect]
     Active Substance: METHOTREXATE
     Route: 064
  5. CHOLESTYRAMINE [Suspect]
     Active Substance: CHOLESTYRAMINE
     Route: 064
  6. FOLIC ACID [Suspect]
     Active Substance: FOLIC ACID
     Route: 064
  7. IRON [Suspect]
     Active Substance: IRON
     Route: 064

REACTIONS (3)
  - Foetal heart rate abnormal [Unknown]
  - Low birth weight baby [Unknown]
  - Foetal exposure during pregnancy [Unknown]
